FAERS Safety Report 8346599-4 (Version None)
Quarter: 2012Q2

REPORT INFORMATION
  Report Type: 
  Country: None (occurrence: None)
  Receive Date: 20120509
  Receipt Date: 20120503
  Transmission Date: 20120825
  Serious: Yes (Other)
  Sender: FDA-Public Use
  Company Number: PHHY2011CA18428

PATIENT
  Sex: Female

DRUGS (4)
  1. CALCIUM WITH VITAMIN D [Concomitant]
  2. ZOLEDRONOC ACID [Suspect]
     Indication: OSTEOPOROSIS
     Dosage: UNK UKN, UNK
     Route: 042
     Dates: start: 20100422
  3. ZOLEDRONOC ACID [Suspect]
     Dosage: UNK UKN, UNK
     Route: 042
     Dates: start: 20110829
  4. PREVACID [Concomitant]
     Dosage: 30 UKN, BID

REACTIONS (6)
  - TENDONITIS [None]
  - BACK PAIN [None]
  - HYPOAESTHESIA [None]
  - SPINAL DISORDER [None]
  - TENDON CALCIFICATION [None]
  - CALCINOSIS [None]
